FAERS Safety Report 7802812-0 (Version None)
Quarter: 2011Q4

REPORT INFORMATION
  Report Type: 
  Country: None (occurrence: None)
  Receive Date: 20111007
  Receipt Date: 20110926
  Transmission Date: 20120403
  Serious: Yes (Hospitalization, Other)
  Sender: FDA-Public Use
  Company Number: JP-MERCK-1106USA02234

PATIENT
  Age: 75 Year
  Sex: Male

DRUGS (4)
  1. METFORMIN HCL [Concomitant]
     Route: 065
  2. JANUVIA [Suspect]
     Indication: TYPE 1 DIABETES MELLITUS
     Route: 048
     Dates: start: 20101210, end: 20110614
  3. GLUFAST [Concomitant]
     Route: 065
  4. CRESTOR [Concomitant]
     Route: 065

REACTIONS (1)
  - RENAL IMPAIRMENT [None]
